FAERS Safety Report 12241382 (Version 1)
Quarter: 2016Q2

REPORT INFORMATION
  Report Type: Spontaneous
  Country: US (occurrence: None)
  Receive Date: 20160405
  Receipt Date: 20160405
  Transmission Date: 20160815
  Serious: Yes (Disabling)
  Sender: FDA-Public Use
  Company Number: None

PATIENT
  Age: 65 Year
  Sex: Male
  Weight: 83.92 kg

DRUGS (8)
  1. VITAMIN C [Concomitant]
     Active Substance: ASCORBIC ACID
  2. VITAMIN D [Concomitant]
     Active Substance: CHOLECALCIFEROL
  3. CIALIS [Suspect]
     Active Substance: TADALAFIL
     Indication: ERECTILE DYSFUNCTION
     Dosage: 17 TABLETS ONCE A DAY
     Route: 048
     Dates: start: 20160308, end: 20160325
  4. MULTIVITAMIN [Concomitant]
     Active Substance: VITAMINS
  5. CIALIS [Suspect]
     Active Substance: TADALAFIL
     Indication: POST PROCEDURAL COMPLICATION
     Dosage: 17 TABLETS ONCE A DAY
     Route: 048
     Dates: start: 20160308, end: 20160325
  6. PENILE SUCTION PUMP [Concomitant]
  7. THYROID [Concomitant]
     Active Substance: LEVOTHYROXINE\LIOTHYRONINE
  8. TESTOSTERONE. [Concomitant]
     Active Substance: TESTOSTERONE

REACTIONS (6)
  - Feeling of body temperature change [None]
  - Lip swelling [None]
  - Hypoaesthesia [None]
  - Hypoaesthesia oral [None]
  - Peripheral swelling [None]
  - Sleep disorder [None]

NARRATIVE: CASE EVENT DATE: 20160326
